FAERS Safety Report 16882241 (Version 1)
Quarter: 2019Q4

REPORT INFORMATION
  Report Type: Spontaneous
  Country: ES (occurrence: ES)
  Receive Date: 20191003
  Receipt Date: 20191003
  Transmission Date: 20200122
  Serious: Yes (Hospitalization, Other)
  Sender: FDA-Public Use
  Company Number: ES-BIOGEN-2019BI00791559

PATIENT
  Sex: Male

DRUGS (1)
  1. SPINRAZA [Suspect]
     Active Substance: NUSINERSEN
     Indication: SPINAL MUSCULAR ATROPHY
     Route: 065
     Dates: start: 20171005

REACTIONS (11)
  - Increased bronchial secretion [Unknown]
  - Catarrh [Unknown]
  - Vomiting [Unknown]
  - Increased upper airway secretion [Unknown]
  - Respiratory syncytial virus test positive [Unknown]
  - Pneumothorax [Unknown]
  - Bronchospasm [Unknown]
  - Complication of device removal [Unknown]
  - Rhinovirus infection [Unknown]
  - Respiratory tract infection [Unknown]
  - Atelectasis [Unknown]

NARRATIVE: CASE EVENT DATE: 20190130
